FAERS Safety Report 4319548-3 (Version None)
Quarter: 2004Q1

REPORT INFORMATION
  Report Type: 
  Country: None (occurrence: None)
  Receive Date: 20040318
  Receipt Date: 20040318
  Transmission Date: 20041129
  Serious: Yes (Death, Hospitalization)
  Sender: FDA-Public Use
  Company Number: None

PATIENT
  Age: 49 Year
  Sex: Female
  Weight: 73.3 kg

DRUGS (15)
  1. ETANERCEPT 25MG/2XWK [Suspect]
     Indication: CHEMOTHERAPY
     Dosage: 25MG/2XWK
     Dates: start: 20031107, end: 20040106
  2. ETANERCEPT 25MG/2XWK [Suspect]
     Indication: CHRONIC MYELOID LEUKAEMIA
     Dosage: 25MG/2XWK
     Dates: start: 20031107, end: 20040106
  3. ETANERCEPT 25MG/2XWK [Suspect]
     Indication: STEM CELL TRANSPLANT
     Dosage: 25MG/2XWK
     Dates: start: 20031107, end: 20040106
  4. BUSULFAN CYTOXAN [Suspect]
     Indication: CHEMOTHERAPY
     Dosage: 42 MG QD ORAL
     Route: 048
     Dates: start: 20031106, end: 20031109
  5. BUSULFAN CYTOXAN [Suspect]
     Indication: CHRONIC MYELOID LEUKAEMIA
     Dosage: 42 MG QD ORAL
     Route: 048
     Dates: start: 20031106, end: 20031109
  6. BUSULFAN CYTOXAN [Suspect]
     Indication: STEM CELL TRANSPLANT
     Dosage: 42 MG QD ORAL
     Route: 048
     Dates: start: 20031106, end: 20031109
  7. CASOPOFUNGIN [Concomitant]
  8. CEFTRIAXONE [Concomitant]
  9. ACYCLOVIR [Concomitant]
  10. FLUXROCORTISONE [Concomitant]
  11. SARGRAMOSTIM [Concomitant]
  12. VORICONAZOLE [Concomitant]
  13. CYTOXAN [Suspect]
     Indication: CHEMOTHERAPY
     Dosage: 4860 MG QD IV
     Route: 042
     Dates: start: 20031110, end: 20031111
  14. CYTOXAN [Suspect]
     Indication: CHRONIC MYELOID LEUKAEMIA
     Dosage: 4860 MG QD IV
     Route: 042
     Dates: start: 20031110, end: 20031111
  15. CYTOXAN [Suspect]
     Indication: STEM CELL TRANSPLANT
     Dosage: 4860 MG QD IV
     Route: 042
     Dates: start: 20031110, end: 20031111

REACTIONS (5)
  - ASPERGILLOSIS [None]
  - BALANCE DISORDER [None]
  - DYSPNOEA [None]
  - MENTAL STATUS CHANGES [None]
  - NUCLEAR MAGNETIC RESONANCE IMAGING BRAIN ABNORMAL [None]
